FAERS Safety Report 24971284 (Version 1)
Quarter: 2025Q1

REPORT INFORMATION
  Report Type: Spontaneous
  Country: US (occurrence: None)
  Receive Date: 20250213
  Receipt Date: 20250213
  Transmission Date: 20250409
  Serious: Yes (Disabling)
  Sender: FDA-CTU
  Company Number: None

PATIENT
  Sex: Female
  Weight: 122.4 kg

DRUGS (10)
  1. WEGOVY [Suspect]
     Active Substance: SEMAGLUTIDE
     Indication: Weight decreased
     Route: 030
     Dates: start: 20230401
  2. FLUOXETINE [Concomitant]
     Active Substance: FLUOXETINE HYDROCHLORIDE
  3. FOLIC ACID [Concomitant]
     Active Substance: FOLIC ACID
  4. INCASSIA [Concomitant]
     Active Substance: NORETHINDRONE
  5. WEGOVY [Concomitant]
     Active Substance: SEMAGLUTIDE
  6. XANAX [Concomitant]
     Active Substance: ALPRAZOLAM
  7. ALBUTEROL [Concomitant]
     Active Substance: ALBUTEROL
  8. VITAMIN D3 [Concomitant]
     Active Substance: CHOLECALCIFEROL
  9. VITAMIN C [Concomitant]
     Active Substance: ASCORBIC ACID
  10. LORATADINE [Concomitant]
     Active Substance: LORATADINE

REACTIONS (1)
  - Hypoglycaemia [None]
